FAERS Safety Report 12689998 (Version 1)
Quarter: 2016Q3

REPORT INFORMATION
  Report Type: Spontaneous
  Country: FR (occurrence: FR)
  Receive Date: 20160826
  Receipt Date: 20160826
  Transmission Date: 20161109
  Serious: Yes (Hospitalization)
  Sender: FDA-Public Use
  Company Number: FR-PFIZER INC-2016397146

PATIENT
  Age: 50 Year
  Sex: Female

DRUGS (4)
  1. ADVIL [Suspect]
     Active Substance: IBUPROFEN
     Dosage: 2 DF, SINGLE
     Route: 048
     Dates: start: 20160303, end: 20160303
  2. ESCITALOPRAM OXALATE. [Suspect]
     Active Substance: ESCITALOPRAM OXALATE
     Dosage: 14 DF, SINGLE
     Route: 048
     Dates: start: 20160303, end: 20160303
  3. SERESTA [Suspect]
     Active Substance: OXAZEPAM
     Dosage: 26 DF, SINGLE
     Route: 048
     Dates: start: 20160303, end: 20160303
  4. TERCIAN [Suspect]
     Active Substance: CYAMEMAZINE
     Dosage: 12 DF, SINGLE
     Route: 048
     Dates: start: 20160303, end: 20160303

REACTIONS (2)
  - Toxicity to various agents [Recovered/Resolved]
  - Poisoning deliberate [Recovered/Resolved]

NARRATIVE: CASE EVENT DATE: 20160303
